FAERS Safety Report 17753987 (Version 1)
Quarter: 2020Q2

REPORT INFORMATION
  Report Type: Spontaneous
  Country: SA (occurrence: SA)
  Receive Date: 20200506
  Receipt Date: 20200506
  Transmission Date: 20200714
  Serious: Yes (Other)
  Sender: FDA-Public Use
  Company Number: SA-CELGENEUS-SAU-20200500047

PATIENT
  Age: 48 Year
  Sex: Male

DRUGS (13)
  1. THALIDOMIDE CELGENE [Suspect]
     Active Substance: THALIDOMIDE
     Dosage: DOSE NOT PROVIDED
     Route: 048
     Dates: start: 201802, end: 201809
  2. CARFILZOMIB [Concomitant]
     Active Substance: CARFILZOMIB
     Dosage: DOSE NOT PROVIDED
     Route: 065
     Dates: start: 201904, end: 201906
  3. THALIDOMIDE CELGENE [Suspect]
     Active Substance: THALIDOMIDE
     Indication: PLASMA CELL MYELOMA
     Dosage: DOSE NOT PROVIDED
     Route: 048
     Dates: start: 201706, end: 201708
  4. DEXAMETHASONE. [Concomitant]
     Active Substance: DEXAMETHASONE
     Dosage: DOSE NOT PROVIDED
     Route: 065
     Dates: start: 20190408, end: 201906
  5. DEXAMETHASONE. [Concomitant]
     Active Substance: DEXAMETHASONE
     Dosage: DOSE NOT PROVIDED
     Route: 065
     Dates: start: 201705, end: 201708
  6. VENETOCLAX. [Concomitant]
     Active Substance: VENETOCLAX
     Dosage: 20 MILLIGRAM
     Route: 065
  7. POMALIDOMIDE [Concomitant]
     Active Substance: POMALIDOMIDE
     Indication: PLASMA CELL MYELOMA
     Dosage: DOSE NOT PROVIDED
     Route: 048
     Dates: start: 20190211, end: 201903
  8. DEXAMETHASONE. [Concomitant]
     Active Substance: DEXAMETHASONE
     Dosage: DOSE NOT PROVIDED
     Route: 065
     Dates: start: 20190211, end: 201903
  9. DEXAMETHASONE. [Concomitant]
     Active Substance: DEXAMETHASONE
     Indication: PLASMA CELL MYELOMA
     Dosage: 40 MILLIGRAM
     Route: 065
     Dates: start: 201812, end: 201901
  10. VENETOCLAX. [Concomitant]
     Active Substance: VENETOCLAX
     Indication: PLASMA CELL MYELOMA
     Dosage: 400 MILLIGRAM
     Route: 065
     Dates: start: 201904
  11. DARATUMUMAB [Concomitant]
     Active Substance: DARATUMUMAB
     Indication: PLASMA CELL MYELOMA
     Dosage: DOSE NOT PROVIDED
     Route: 065
     Dates: start: 20190211, end: 201903
  12. CARFILZOMIB [Concomitant]
     Active Substance: CARFILZOMIB
     Indication: PLASMA CELL MYELOMA
     Route: 065
     Dates: start: 201812, end: 201901
  13. VENETOCLAX. [Concomitant]
     Active Substance: VENETOCLAX
     Dosage: DOSE NOT PROVIDED
     Route: 065
     Dates: start: 20190608

REACTIONS (1)
  - Neurotoxicity [Unknown]
